FAERS Safety Report 6915852-0 (Version None)
Quarter: 2010Q3

REPORT INFORMATION
  Report Type: 
  Country: None (occurrence: None)
  Receive Date: 20100805
  Receipt Date: 20100125
  Transmission Date: 20110219
  Serious: Yes (Life-Threatening, Other)
  Sender: FDA-Public Use
  Company Number: ZYD-10-AE-028

PATIENT
  Age: 33 Year

DRUGS (1)
  1. TOPIRAMATE [Suspect]
     Indication: EPILEPSY
     Dates: end: 20090624

REACTIONS (4)
  - DRUG DISPENSING ERROR [None]
  - DRUG DOSE OMISSION [None]
  - PRODUCT SUBSTITUTION ISSUE [None]
  - STATUS EPILEPTICUS [None]
